FAERS Safety Report 4818932-9 (Version None)
Quarter: 2005Q4

REPORT INFORMATION
  Report Type: 
  Country: None (occurrence: None)
  Receive Date: 20051101
  Receipt Date: 20051024
  Transmission Date: 20060501
  Serious: Yes (Other)
  Sender: FDA-Public Use
  Company Number: 2005145298

PATIENT
  Sex: Male

DRUGS (1)
  1. GENOTROPIN [Suspect]
     Indication: FOETAL GROWTH RETARDATION
     Dosage: 0.035 MG/KG (0.035 MG/KG, DAILY INTERVAL: EVERY DAY), SUBCUTANEOUS
     Route: 058

REACTIONS (2)
  - CARPAL TUNNEL SYNDROME [None]
  - METABOLIC FUNCTION TEST ABNORMAL [None]
